FAERS Safety Report 16894527 (Version 1)
Quarter: 2019Q4

REPORT INFORMATION
  Report Type: Report from Study
  Country: JP (occurrence: JP)
  Receive Date: 20191008
  Receipt Date: 20191008
  Transmission Date: 20200122
  Serious: Yes (Death)
  Sender: FDA-Public Use
  Company Number: JP-PFIZER INC-2019429058

PATIENT
  Sex: Female

DRUGS (1)
  1. PACLITAXEL. [Suspect]
     Active Substance: PACLITAXEL
     Indication: BREAST CANCER
     Dosage: 80 MG/M2, CYCLIC (INFUSED, ON DAYS 1, 8 AND 15 OF A 28-DAY CYCLE, OVER A PERIOD OF ABOUT 1 H)

REACTIONS (1)
  - Death [Fatal]
